FAERS Safety Report 9813976 (Version 1)
Quarter: 2014Q1

REPORT INFORMATION
  Report Type: Spontaneous
  Country: GB (occurrence: GB)
  Receive Date: 20140113
  Receipt Date: 20140113
  Transmission Date: 20141002
  Serious: Yes (Other)
  Sender: FDA-Public Use
  Company Number: PHFR2014GB000567

PATIENT
  Sex: Female

DRUGS (18)
  1. CICLOSPORIN [Suspect]
     Indication: URTICARIA CHRONIC
     Dosage: 2.5 MG/KG, UNK
  2. CICLOSPORIN [Suspect]
     Indication: ANGIOEDEMA
  3. METHOTREXATE [Suspect]
     Indication: URTICARIA CHRONIC
  4. METHOTREXATE [Suspect]
     Indication: ANGIOEDEMA
  5. PREDNISOLONE [Suspect]
     Indication: URTICARIA CHRONIC
     Dosage: 40 MG, PER DAY
  6. PREDNISOLONE [Suspect]
     Indication: ANGIOEDEMA
  7. CETIRIZINE [Suspect]
     Indication: URTICARIA CHRONIC
  8. CETIRIZINE [Suspect]
     Indication: ANGIOEDEMA
  9. LORATADINE [Suspect]
     Indication: URTICARIA CHRONIC
  10. LORATADINE [Suspect]
     Indication: ANGIOEDEMA
  11. FEXOFENADINE [Suspect]
     Indication: URTICARIA CHRONIC
  12. FEXOFENADINE [Suspect]
     Indication: ANGIOEDEMA
  13. HYDROXYZINE [Suspect]
     Indication: URTICARIA CHRONIC
  14. HYDROXYZINE [Suspect]
     Indication: ANGIOEDEMA
  15. HYDROXYCHLOROQUINE [Suspect]
     Indication: URTICARIA CHRONIC
     Dosage: 200 MG, PER DAY
  16. HYDROXYCHLOROQUINE [Suspect]
     Indication: ANGIOEDEMA
     Dosage: 400 MG, PER DAY
  17. DAPSONE [Suspect]
     Indication: URTICARIA CHRONIC
     Dosage: 50 MG, BID
  18. DAPSONE [Suspect]
     Indication: ANGIOEDEMA

REACTIONS (6)
  - Angioedema [Unknown]
  - Urticaria [Unknown]
  - Asthma [Unknown]
  - Blood pressure increased [Unknown]
  - Drug effect incomplete [Unknown]
  - Drug ineffective [Unknown]
